FAERS Safety Report 9768035 (Version 1)
Quarter: 2013Q4

REPORT INFORMATION
  Report Type: Spontaneous
  Country: US (occurrence: None)
  Receive Date: 20131003
  Receipt Date: 20131003
  Transmission Date: 20140711
  Serious: Yes (Death, Hospitalization)
  Sender: FDA-Public Use
  Company Number: 2013P1019817

PATIENT
  Age: 65 Year
  Sex: Male

DRUGS (14)
  1. DIGOXIN [Suspect]
  2. WARFARIN SODIUM [Suspect]
  3. ASPIRIN [Suspect]
  4. ZOLPIDEM TARTRATE [Suspect]
  5. ESOMEPRAZOLE [Suspect]
  6. AMIODARONE HYDROCHLORIDE [Suspect]
  7. VICODIN [Suspect]
  8. LISINOPRIL [Suspect]
  9. FRUSEMIDE [Suspect]
  10. PREDNISONE [Suspect]
  11. LORAZEPAM [Suspect]
  12. SIMVASTATIN [Suspect]
  13. CARVEDILOL [Suspect]
  14. RITUXIMAB [Suspect]

REACTIONS (4)
  - Pneumonia [None]
  - Cardiac failure congestive [None]
  - Sepsis [None]
  - Cerebrovascular accident [None]
